FAERS Safety Report 12026951 (Version 1)
Quarter: 2016Q1

REPORT INFORMATION
  Report Type: Report from Study
  Country: US (occurrence: US)
  Receive Date: 20160206
  Receipt Date: 20160206
  Transmission Date: 20160526
  Serious: Yes (Other)
  Sender: FDA-Public Use
  Company Number: US-ABBVIE-15K-163-1488457-00

PATIENT
  Sex: Female
  Weight: 59.93 kg

DRUGS (6)
  1. LEFLUNOMIDE. [Concomitant]
     Active Substance: LEFLUNOMIDE
     Indication: PSORIATIC ARTHROPATHY
  2. HUMIRA [Suspect]
     Active Substance: ADALIMUMAB
     Indication: PSORIATIC ARTHROPATHY
     Route: 058
     Dates: start: 2007
  3. HUMIRA [Suspect]
     Active Substance: ADALIMUMAB
     Indication: RHEUMATOID ARTHRITIS
     Dosage: SPORADIC USE
     Route: 058
     Dates: end: 2009
  4. HUMIRA [Suspect]
     Active Substance: ADALIMUMAB
     Dosage: SPORADIC USE
     Route: 058
     Dates: start: 2014, end: 2014
  5. EVISTA [Concomitant]
     Active Substance: RALOXIFENE HYDROCHLORIDE
     Indication: OSTEOPENIA
  6. LEFLUNOMIDE. [Concomitant]
     Active Substance: LEFLUNOMIDE
     Indication: RHEUMATOID ARTHRITIS

REACTIONS (4)
  - Anal pruritus [Recovered/Resolved]
  - Arthritis [Not Recovered/Not Resolved]
  - Rectal cancer [Recovered/Resolved]
  - Anal incontinence [Recovering/Resolving]

NARRATIVE: CASE EVENT DATE: 2009
